FAERS Safety Report 17057420 (Version 1)
Quarter: 2019Q4

REPORT INFORMATION
  Report Type: Spontaneous
  Country: US (occurrence: US)
  Receive Date: 20191121
  Receipt Date: 20191121
  Transmission Date: 20200122
  Serious: Yes (Death, Other)
  Sender: FDA-Public Use
  Company Number: US-ALKEM LABORATORIES LIMITED-US-ALKEM-2019-09969

PATIENT
  Age: 14 Year
  Sex: Male

DRUGS (2)
  1. OXYCODONE HYDROCHLORIDE. [Suspect]
     Active Substance: OXYCODONE HYDROCHLORIDE
     Indication: PRODUCT USED FOR UNKNOWN INDICATION
     Dosage: UNK
     Route: 065
  2. DEXTROMETHORPHAN [Suspect]
     Active Substance: DEXTROMETHORPHAN
     Indication: PRODUCT USED FOR UNKNOWN INDICATION
     Dosage: UNK
     Route: 065

REACTIONS (8)
  - Metabolic acidosis [Unknown]
  - Hypotension [Unknown]
  - Coma [Unknown]
  - Toxicity to various agents [Fatal]
  - Electrocardiogram QT prolonged [Unknown]
  - Bradycardia [Unknown]
  - Respiratory depression [Unknown]
  - Electrocardiogram QRS complex prolonged [Unknown]
